FAERS Safety Report 12637569 (Version 1)
Quarter: 2016Q3

REPORT INFORMATION
  Report Type: Spontaneous
  Country: US (occurrence: US)
  Receive Date: 20160809
  Receipt Date: 20160809
  Transmission Date: 20161109
  Serious: No
  Sender: FDA-Public Use
  Company Number: US-ABBVIE-16P-163-1636559-00

PATIENT
  Sex: Male
  Weight: 54.43 kg

DRUGS (17)
  1. ZOLOFT [Suspect]
     Active Substance: SERTRALINE HYDROCHLORIDE
     Indication: TOURETTE^S DISORDER
  2. ADDERALL [Suspect]
     Active Substance: AMPHETAMINE ASPARTATE\AMPHETAMINE SULFATE\DEXTROAMPHETAMINE SACCHARATE\DEXTROAMPHETAMINE SULFATE
     Indication: TOURETTE^S DISORDER
  3. CLONIDINE. [Suspect]
     Active Substance: CLONIDINE
     Indication: ATTENTION DEFICIT/HYPERACTIVITY DISORDER
  4. VYVANSE [Suspect]
     Active Substance: LISDEXAMFETAMINE DIMESYLATE
     Indication: TOURETTE^S DISORDER
  5. GENOTROPIN [Suspect]
     Active Substance: SOMATROPIN
     Indication: BLOOD GROWTH HORMONE DECREASED
     Dosage: PEN 12
     Route: 050
     Dates: start: 201506, end: 201604
  6. DEPAKOTE [Suspect]
     Active Substance: DIVALPROEX SODIUM
     Indication: AUTISM SPECTRUM DISORDER
     Dosage: AM AND PM
     Route: 065
  7. GENOTROPIN [Suspect]
     Active Substance: SOMATROPIN
     Dosage: PEN 12
     Route: 050
     Dates: start: 201604
  8. ADDERALL [Suspect]
     Active Substance: AMPHETAMINE ASPARTATE\AMPHETAMINE SULFATE\DEXTROAMPHETAMINE SACCHARATE\DEXTROAMPHETAMINE SULFATE
     Indication: ATTENTION DEFICIT/HYPERACTIVITY DISORDER
  9. VYVANSE [Suspect]
     Active Substance: LISDEXAMFETAMINE DIMESYLATE
     Indication: ATTENTION DEFICIT/HYPERACTIVITY DISORDER
  10. DEPAKOTE [Suspect]
     Active Substance: DIVALPROEX SODIUM
     Indication: TOURETTE^S DISORDER
  11. ZOLOFT [Suspect]
     Active Substance: SERTRALINE HYDROCHLORIDE
     Indication: ATTENTION DEFICIT/HYPERACTIVITY DISORDER
  12. CLONIDINE. [Suspect]
     Active Substance: CLONIDINE
     Indication: TOURETTE^S DISORDER
  13. VYVANSE [Suspect]
     Active Substance: LISDEXAMFETAMINE DIMESYLATE
     Indication: AUTISM SPECTRUM DISORDER
     Dosage: AM
     Route: 065
  14. DEPAKOTE [Suspect]
     Active Substance: DIVALPROEX SODIUM
     Indication: ATTENTION DEFICIT/HYPERACTIVITY DISORDER
  15. ADDERALL [Suspect]
     Active Substance: AMPHETAMINE ASPARTATE\AMPHETAMINE SULFATE\DEXTROAMPHETAMINE SACCHARATE\DEXTROAMPHETAMINE SULFATE
     Indication: AUTISM SPECTRUM DISORDER
     Dosage: IN AFTERNOON
     Route: 065
  16. ZOLOFT [Suspect]
     Active Substance: SERTRALINE HYDROCHLORIDE
     Indication: AUTISM SPECTRUM DISORDER
     Dosage: 1 AND HALF TABLET AM AND PM
     Route: 065
  17. CLONIDINE. [Suspect]
     Active Substance: CLONIDINE
     Indication: AUTISM SPECTRUM DISORDER
     Route: 065

REACTIONS (6)
  - Blood growth hormone decreased [Unknown]
  - Malaise [Unknown]
  - Growth retardation [Unknown]
  - Pyrexia [Unknown]
  - Growth accelerated [Unknown]
  - Body mass index abnormal [Unknown]
